FAERS Safety Report 8920855 (Version 1)
Quarter: 2012Q4

REPORT INFORMATION
  Report Type: 
  Country: FR (occurrence: FR)
  Receive Date: 20121121
  Receipt Date: 20121121
  Transmission Date: 20130627
  Serious: Yes (Hospitalization)
  Sender: FDA-Public Use
  Company Number: FR-ASTRAZENECA-2012SE86385

PATIENT
  Sex: Female

DRUGS (6)
  1. CRESTOR [Suspect]
     Route: 048
     Dates: start: 20111022, end: 20111201
  2. NEBILOX [Suspect]
     Indication: HYPERTENSION
     Route: 048
     Dates: start: 20111022, end: 20111201
  3. PREVISCAN [Suspect]
     Indication: DEEP VEIN THROMBOSIS
     Route: 048
     Dates: start: 20111028, end: 20111130
  4. HYTACAND [Concomitant]
     Indication: HYPERTENSION
     Dosage: 8 mg / 12.5 mg 1 DF DAILY
     Route: 048
     Dates: end: 20111201
  5. PIASCLEDINE [Concomitant]
     Route: 048
     Dates: end: 20111201
  6. ALPRAZOLAM [Concomitant]
     Route: 048
     Dates: end: 20111201

REACTIONS (3)
  - Drug reaction with eosinophilia and systemic symptoms [Recovered/Resolved]
  - Renal impairment [None]
  - Liver disorder [None]
